FAERS Safety Report 5988982-8 (Version None)
Quarter: 2008Q4

REPORT INFORMATION
  Report Type: 
  Country: None (occurrence: None)
  Receive Date: 20081210
  Receipt Date: 20081205
  Transmission Date: 20090506
  Serious: Yes (Hospitalization)
  Sender: FDA-Public Use
  Company Number: A0725139A

PATIENT
  Age: 80 Year
  Sex: Male
  Weight: 113.6 kg

DRUGS (4)
  1. AVANDIA [Suspect]
     Dosage: 4MG PER DAY
     Route: 065
     Dates: start: 20000512, end: 20070627
  2. GLUCOPHAGE [Concomitant]
     Dates: start: 20000212, end: 20010206
  3. LANTUS [Concomitant]
     Dates: start: 20000101
  4. AMARYL [Concomitant]
     Dates: start: 20010901, end: 20031013

REACTIONS (5)
  - ARRHYTHMIA [None]
  - CARDIAC FAILURE CONGESTIVE [None]
  - CORONARY ARTERY DISEASE [None]
  - HEART INJURY [None]
  - MYOCARDIAL INFARCTION [None]
